FAERS Safety Report 10640647 (Version 1)
Quarter: 2014Q4

REPORT INFORMATION
  Report Type: Spontaneous
  Country: US (occurrence: None)
  Receive Date: 20141205
  Receipt Date: 20141205
  Transmission Date: 20150529
  Serious: Yes (Other)
  Sender: FDA-Public Use
  Company Number: LMI-2014-00520

PATIENT
  Age: 43 Year
  Sex: Female
  Weight: 101 kg

DRUGS (8)
  1. CITALOPRAM [Concomitant]
     Active Substance: CITALOPRAM HYDROBROMIDE
  2. PRAVACHOL [Concomitant]
     Active Substance: PRAVASTATIN SODIUM
  3. BRILINTA [Concomitant]
     Active Substance: TICAGRELOR
  4. DEFINITY [Suspect]
     Active Substance: PERFLUTREN
     Indication: STRESS ECHOCARDIOGRAM
     Dosage: DOSE AND DILUENT NOT PROVIDED
     Route: 040
     Dates: start: 20141031, end: 20141031
  5. DEFINITY [Suspect]
     Active Substance: PERFLUTREN
     Indication: STRESS ECHOCARDIOGRAM
     Dosage: DOSE AND DILUENT NOT PROVIDED
     Route: 040
     Dates: start: 20141031, end: 20141031
  6. ASPIRIN (ACETYLSALICYLIC ACID) [Concomitant]
     Active Substance: ASPIRIN
  7. CARVEDILOL. [Concomitant]
     Active Substance: CARVEDILOL
  8. DIOVAN [Concomitant]
     Active Substance: VALSARTAN

REACTIONS (4)
  - Nausea [None]
  - Vomiting [None]
  - Left ventricular dysfunction [None]
  - Headache [None]

NARRATIVE: CASE EVENT DATE: 20141031
